FAERS Safety Report 4367676-9 (Version None)
Quarter: 2004Q2

REPORT INFORMATION
  Report Type: 
  Country: None (occurrence: None)
  Receive Date: 20040601
  Receipt Date: 20040519
  Transmission Date: 20050107
  Serious: Yes (Life-Threatening)
  Sender: FDA-Public Use
  Company Number: FR-GLAXOSMITHKLINE-B0333199A

PATIENT
  Age: 69 Year
  Sex: Female
  Weight: 87 kg

DRUGS (1)
  1. CLAMOXYL [Suspect]
     Indication: ILL-DEFINED DISORDER
     Route: 065
     Dates: end: 20040101

REACTIONS (1)
  - ANGIONEUROTIC OEDEMA [None]
